FAERS Safety Report 8575128-5 (Version None)
Quarter: 2012Q3

REPORT INFORMATION
  Report Type: 
  Country: None (occurrence: None)
  Receive Date: 20120807
  Receipt Date: 20120801
  Transmission Date: 20120928
  Serious: Yes (Disabling, Other)
  Sender: FDA-Public Use
  Company Number: US-SANOFI-AVENTIS-2012SA055706

PATIENT
  Sex: Female

DRUGS (2)
  1. ALLEGRA [Suspect]
  2. METFORMIN HYDROCHLORIDE [Concomitant]

REACTIONS (2)
  - DISABILITY [None]
  - DIABETES MELLITUS [None]
